FAERS Safety Report 9203731 (Version 1)
Quarter: 2013Q2

REPORT INFORMATION
  Report Type: Spontaneous
  Country: US (occurrence: US)
  Receive Date: 20130402
  Receipt Date: 20130402
  Transmission Date: 20140414
  Serious: Yes (Hospitalization)
  Sender: FDA-Public Use
  Company Number: US-BAYER-2013-037721

PATIENT
  Age: 44 Year
  Sex: Female

DRUGS (10)
  1. YAZ [Suspect]
     Dosage: UNK
  2. GIANVI [Suspect]
  3. KLONOPIN [Concomitant]
     Dosage: 0.5 MG, BID
  4. NITROFURANTOIN [Concomitant]
     Dosage: 100 MG, BID
  5. CLARINEX [Concomitant]
     Dosage: 5 MG, QD
  6. PAXIL [Concomitant]
     Dosage: 12.5 MG, QD
  7. NEXIUM [Concomitant]
     Dosage: 40 MG, QD
  8. IMITREX [Concomitant]
     Indication: MIGRAINE
  9. FLONASE [Concomitant]
     Dosage: 1 EACH NOSTRIL EVERY OTHER DAY
  10. PROTONIX [Concomitant]

REACTIONS (2)
  - Cerebrovascular accident [None]
  - Cerebral infarction [None]
